FAERS Safety Report 21940049 (Version 1)
Quarter: 2023Q1

REPORT INFORMATION
  Report Type: Report from Study
  Country: JP (occurrence: JP)
  Receive Date: 20230201
  Receipt Date: 20230201
  Transmission Date: 20230417
  Serious: Yes (Other)
  Sender: FDA-Public Use
  Company Number: JP-SA-2023SA034279

PATIENT
  Sex: Male

DRUGS (3)
  1. ELOCTATE [Suspect]
     Active Substance: EFMOROCTOCOG ALFA
     Indication: Factor VIII deficiency
     Dosage: PROPHYLACTICALLY
     Route: 042
  2. ELOCTATE [Suspect]
     Active Substance: EFMOROCTOCOG ALFA
     Indication: Factor VIII deficiency
     Dosage: PROPHYLACTICALLY
     Route: 042
  3. UNSPECIFIED INGREDIENT [Suspect]
     Active Substance: UNSPECIFIED INGREDIENT
     Indication: Factor VIII deficiency
     Route: 065

REACTIONS (9)
  - Haemorrhage [Unknown]
  - Wound haemorrhage [Unknown]
  - Haematuria [Unknown]
  - Gingival bleeding [Unknown]
  - Epistaxis [Unknown]
  - Joint stiffness [Unknown]
  - Fatigue [Unknown]
  - Arthralgia [Unknown]
  - Treatment noncompliance [Unknown]
